FAERS Safety Report 10657896 (Version 1)
Quarter: 2014Q4

REPORT INFORMATION
  Report Type: Spontaneous
  Country: US (occurrence: US)
  Receive Date: 20141217
  Receipt Date: 20141217
  Transmission Date: 20150529
  Serious: No
  Sender: FDA-Public Use
  Company Number: US-EISAI MEDICAL RESEARCH-EC-2014-002288

PATIENT
  Sex: Male

DRUGS (4)
  1. ZONEGRAN [Suspect]
     Active Substance: ZONISAMIDE
     Dosage: TAPERED DOWN
     Route: 048
  2. VIMPAT [Suspect]
     Active Substance: LACOSAMIDE
     Dosage: TAPERED DOWN
     Route: 048
  3. ZONEGRAN [Suspect]
     Active Substance: ZONISAMIDE
     Indication: PRODUCT USED FOR UNKNOWN INDICATION
     Dosage: UNKNOWN
     Route: 048
  4. VIMPAT [Suspect]
     Active Substance: LACOSAMIDE
     Indication: PRODUCT USED FOR UNKNOWN INDICATION
     Dosage: UNKNOWN
     Route: 048

REACTIONS (2)
  - Irritability [Unknown]
  - Crying [Unknown]
